FAERS Safety Report 7517754-8 (Version None)
Quarter: 2011Q2

REPORT INFORMATION
  Report Type: 
  Country: None (occurrence: None)
  Receive Date: 20110602
  Receipt Date: 20110524
  Transmission Date: 20111010
  Serious: No
  Sender: FDA-Public Use
  Company Number: US-BIOGENIDEC-2011BI019574

PATIENT
  Age: 38 Year
  Sex: Female

DRUGS (3)
  1. AVONEX [Concomitant]
     Route: 030
  2. AVONEX [Concomitant]
     Indication: MULTIPLE SCLEROSIS
     Route: 030
     Dates: start: 20040430
  3. TYSABRI [Suspect]
     Indication: MULTIPLE SCLEROSIS
     Route: 042
     Dates: start: 20101124

REACTIONS (4)
  - FEELING ABNORMAL [None]
  - FATIGUE [None]
  - PAIN [None]
  - HYPOAESTHESIA [None]
